FAERS Safety Report 22189735 (Version 3)
Quarter: 2023Q2

REPORT INFORMATION
  Report Type: Spontaneous
  Country: US (occurrence: None)
  Receive Date: 20230410
  Receipt Date: 20230525
  Transmission Date: 20230721
  Serious: Yes (Hospitalization, Other)
  Sender: FDA-Public Use
  Company Number: US-Hikma Pharmaceuticals USA Inc.-US-H14001-23-01052

PATIENT
  Age: 58 Year
  Sex: Female
  Weight: 64 kg

DRUGS (13)
  1. LEUCOVORIN [Suspect]
     Active Substance: LEUCOVORIN
     Indication: Gastric cancer
     Route: 042
     Dates: start: 20230315
  2. OXALIPLATIN [Suspect]
     Active Substance: OXALIPLATIN
     Indication: Gastric cancer
     Route: 042
     Dates: start: 20230315
  3. FLUOROURACIL [Suspect]
     Active Substance: FLUOROURACIL
     Indication: Gastric cancer
     Route: 040
     Dates: start: 20230315
  4. FLUOROURACIL [Suspect]
     Active Substance: FLUOROURACIL
     Route: 041
     Dates: start: 20230315
  5. NIVOLUMAB [Suspect]
     Active Substance: NIVOLUMAB
     Indication: Gastric cancer
     Route: 042
     Dates: start: 20230315
  6. NICOTINE [Concomitant]
     Active Substance: NICOTINE
     Indication: Ex-tobacco user
     Dosage: UNKNOWN
     Route: 065
     Dates: start: 20230207
  7. ACYCLOVIR [Concomitant]
     Active Substance: ACYCLOVIR
     Indication: Genital herpes
     Dosage: UNKNOWN
     Route: 065
     Dates: start: 20130605
  8. LISINOPRIL [Concomitant]
     Active Substance: LISINOPRIL
     Indication: Hypertension
     Dosage: UNKNOWN
     Route: 065
     Dates: start: 20190130
  9. FAMOTIDINE [Concomitant]
     Active Substance: FAMOTIDINE
     Indication: Gastrooesophageal reflux disease
     Dosage: UNKNOWN
     Route: 065
     Dates: start: 20230206
  10. PAROXETINE [Concomitant]
     Active Substance: PAROXETINE
     Indication: Anxiety disorder
     Dosage: UNKNOWN
     Route: 065
     Dates: start: 20061027
  11. PAROXETINE [Concomitant]
     Active Substance: PAROXETINE
     Indication: Depression
  12. PAROXETINE [Concomitant]
     Active Substance: PAROXETINE
     Indication: Panic disorder
  13. VITAMINS [Concomitant]
     Active Substance: VITAMINS
     Indication: Supplementation therapy
     Dosage: UNKNOWN
     Route: 065
     Dates: start: 20230207

REACTIONS (20)
  - Dehydration [Recovered/Resolved]
  - Faeces soft [Unknown]
  - Pyrexia [Recovered/Resolved]
  - Oral disorder [Unknown]
  - Blood pressure decreased [Unknown]
  - Blood urea increased [Unknown]
  - Hypertension [Unknown]
  - Blood glucose increased [Unknown]
  - White blood cell count increased [Unknown]
  - Neutrophil count increased [Unknown]
  - Lymphocyte count decreased [Unknown]
  - Anxiety [Unknown]
  - Muscle twitching [Unknown]
  - Tearfulness [Unknown]
  - Blood chloride increased [Unknown]
  - Aphthous ulcer [Recovered/Resolved]
  - Red blood cell count decreased [Unknown]
  - Vomiting [Recovered/Resolved]
  - Nausea [Recovered/Resolved]
  - Diarrhoea [Recovered/Resolved]

NARRATIVE: CASE EVENT DATE: 20230316
